FAERS Safety Report 8074593-X (Version None)
Quarter: 2012Q1

REPORT INFORMATION
  Report Type: 
  Country: None (occurrence: None)
  Receive Date: 20120123
  Receipt Date: 20120107
  Transmission Date: 20120608
  Serious: Yes (Other)
  Sender: FDA-Public Use
  Company Number: 2012AP000052

PATIENT
  Age: 2 Year
  Sex: Female

DRUGS (2)
  1. CARBAMAZEPINE [Suspect]
     Indication: CONVULSION
  2. VALPROATE SODIUM [Suspect]
     Indication: CONVULSION

REACTIONS (6)
  - CONDITION AGGRAVATED [None]
  - PYREXIA [None]
  - NONKETOTIC HYPERGLYCINAEMIA [None]
  - HYPOTONIA [None]
  - CHILDHOOD DISINTEGRATIVE DISORDER [None]
  - CONVULSION [None]
